FAERS Safety Report 18076727 (Version 1)
Quarter: 2020Q3

REPORT INFORMATION
  Report Type: Spontaneous
  Country: CA (occurrence: CA)
  Receive Date: 20200727
  Receipt Date: 20200727
  Transmission Date: 20201103
  Serious: Yes (Hospitalization)
  Sender: FDA-Public Use
  Company Number: CA-TEVA-2020-CA-1805494

PATIENT
  Age: 73 Year
  Sex: Male
  Weight: 49 kg

DRUGS (1)
  1. TEVA?MOXIFLOXACIN [Suspect]
     Active Substance: MOXIFLOXACIN
     Indication: CHRONIC OBSTRUCTIVE PULMONARY DISEASE
     Dosage: 400 MILLIGRAM DAILY;
     Route: 048

REACTIONS (3)
  - Myoclonus [Recovered/Resolved]
  - Condition aggravated [Recovered/Resolved]
  - Respiratory disorder [Recovered/Resolved]
